FAERS Safety Report 8694256 (Version 3)
Quarter: 2013Q3

REPORT INFORMATION
  Report Type: Spontaneous
  Country: GB (occurrence: GB)
  Receive Date: 20120731
  Receipt Date: 20130925
  Transmission Date: 20140515
  Serious: Yes (Other)
  Sender: FDA-Public Use
  Company Number: GB-PFIZER INC-2012181121

PATIENT
  Age: 81 Year
  Sex: Male
  Weight: 65 kg

DRUGS (10)
  1. PIROXICAM [Suspect]
     Indication: POSTOPERATIVE ANALGESIA
     Dosage: MELT
     Route: 048
     Dates: start: 20120502, end: 20120511
  2. GENTAMICIN [Suspect]
     Indication: ANTIBIOTIC PROPHYLAXIS
     Dosage: 1 DOSE
     Route: 042
  3. MEBEVERINE [Concomitant]
     Indication: IRRITABLE BOWEL SYNDROME
     Dosage: LONG TERM
     Route: 048
  4. SIMVASTATIN [Concomitant]
     Indication: BLOOD CHOLESTEROL INCREASED
     Dosage: AT NIGHT, LONG TERM
     Route: 048
  5. QUININE SULPHATE [Concomitant]
     Indication: MUSCLE SPASMS
     Dosage: AT NIGHT, LONG TERM
     Route: 048
  6. OMEPRAZOLE [Concomitant]
     Indication: GASTRIC PH DECREASED
     Dosage: LONG TERM
     Route: 048
  7. ACETYLSALICYLIC ACID [Concomitant]
     Indication: ANTIPLATELET THERAPY
     Dosage: LONG TERM
     Route: 048
     Dates: end: 20120505
  8. FELODIPINE [Concomitant]
     Indication: HYPERTENSION
     Dosage: LONG TERM
     Route: 048
  9. METRONIDAZOLE [Concomitant]
     Indication: PROPHYLAXIS
     Dosage: 1 X PRE-OPERATIVE DOSE
     Route: 042
  10. DOMPERIDONE [Concomitant]
     Indication: PROCEDURAL NAUSEA
     Dosage: STOPPED AT DISCHARGE
     Route: 048
     Dates: start: 20120502

REACTIONS (3)
  - Renal failure acute [Recovered/Resolved]
  - Myocardial infarction [Unknown]
  - Blood creatinine increased [Recovered/Resolved]
